FAERS Safety Report 23892302 (Version 1)
Quarter: 2024Q2

REPORT INFORMATION
  Report Type: Other
  Country: US (occurrence: None)
  Receive Date: 20240524
  Receipt Date: 20240524
  Transmission Date: 20240716
  Serious: No
  Sender: FDA-Public Use
  Company Number: US-ROCHE-3369450

PATIENT
  Age: 12 Year
  Sex: Female

DRUGS (13)
  1. TOCILIZUMAB [Suspect]
     Active Substance: TOCILIZUMAB
     Indication: Pulmonary alveolar haemorrhage
     Route: 065
  2. TOCILIZUMAB [Suspect]
     Active Substance: TOCILIZUMAB
     Indication: Thrombotic microangiopathy
  3. TOCILIZUMAB [Suspect]
     Active Substance: TOCILIZUMAB
     Indication: COVID-19 pneumonia
  4. DEVICE [Concomitant]
     Active Substance: DEVICE
  5. OXYGEN [Concomitant]
     Active Substance: OXYGEN
  6. LINEZOLID [Concomitant]
     Active Substance: LINEZOLID
  7. VANCOMYCIN [Concomitant]
     Active Substance: VANCOMYCIN
  8. CEFEPIME [Concomitant]
     Active Substance: CEFEPIME HYDROCHLORIDE
  9. AMPHOTERICIN B [Concomitant]
     Active Substance: AMPHOTERICIN B
  10. REMDESIVIR [Concomitant]
     Active Substance: REMDESIVIR
  11. LOVENOX [Concomitant]
     Active Substance: ENOXAPARIN SODIUM
  12. METHYLPREDNISOLONE [Concomitant]
     Active Substance: METHYLPREDNISOLONE
     Route: 042
  13. ANAKINRA [Concomitant]
     Active Substance: ANAKINRA

REACTIONS (2)
  - Off label use [Unknown]
  - No adverse event [Unknown]
